FAERS Safety Report 25417411 (Version 1)
Quarter: 2025Q2

REPORT INFORMATION
  Report Type: Spontaneous
  Country: US (occurrence: None)
  Receive Date: 20250608
  Receipt Date: 20250608
  Transmission Date: 20250717
  Serious: Yes (Disabling)
  Sender: FDA-CTU
  Company Number: None

PATIENT
  Age: 54 Year
  Sex: Female
  Weight: 67.5 kg

DRUGS (3)
  1. TRAZODONE [Suspect]
     Active Substance: TRAZODONE HYDROCHLORIDE
     Indication: Insomnia
     Dates: start: 20221008
  2. SERTRALINE [Concomitant]
     Active Substance: SERTRALINE HYDROCHLORIDE
  3. TRAZODONE [Concomitant]
     Active Substance: TRAZODONE HYDROCHLORIDE

REACTIONS (11)
  - Intentional product use issue [None]
  - Withdrawal syndrome [None]
  - Back pain [None]
  - Nausea [None]
  - Dizziness [None]
  - Fatigue [None]
  - Pain [None]
  - Amnesia [None]
  - Asthenia [None]
  - Fatigue [None]
  - Activities of daily living decreased [None]

NARRATIVE: CASE EVENT DATE: 20230315
